FAERS Safety Report 22147983 (Version 1)
Quarter: 2023Q1

REPORT INFORMATION
  Report Type: Report from Study
  Country: CO (occurrence: CO)
  Receive Date: 20230328
  Receipt Date: 20230328
  Transmission Date: 20230417
  Serious: Yes (Hospitalization, Other)
  Sender: FDA-Public Use
  Company Number: CO-APIL-2309372US

PATIENT
  Sex: Female

DRUGS (1)
  1. BOTULINUM TOXIN TYPE A [Suspect]
     Active Substance: BOTULINUM TOXIN TYPE A
     Indication: Migraine
     Dosage: UNK, SINGLE
     Route: 030
     Dates: start: 20221201, end: 20221201

REACTIONS (12)
  - Tremor [Recovered/Resolved]
  - Saliva altered [Recovered/Resolved]
  - Peripheral coldness [Recovering/Resolving]
  - Pain [Recovering/Resolving]
  - Head discomfort [Recovering/Resolving]
  - Sleep disorder [Recovering/Resolving]
  - Pain [Recovering/Resolving]
  - Seizure [Recovered/Resolved]
  - Vomiting [Recovered/Resolved]
  - Hypoaesthesia [Not Recovered/Not Resolved]
  - Vision blurred [Recovered/Resolved]
  - Weight decreased [Not Recovered/Not Resolved]

NARRATIVE: CASE EVENT DATE: 20230201
